FAERS Safety Report 8511039-9 (Version None)
Quarter: 2012Q3

REPORT INFORMATION
  Report Type: 
  Country: None (occurrence: None)
  Receive Date: 20120716
  Receipt Date: 20120710
  Transmission Date: 20120928
  Serious: Yes (Life-Threatening, Hospitalization, Other)
  Sender: FDA-Public Use
  Company Number: NO-BAYER-NO-2005-004874

PATIENT
  Age: 17 Year
  Sex: Female

DRUGS (1)
  1. YASMIN [Suspect]
     Indication: ORAL CONTRACEPTION
     Dosage: 1 TAB(S), 1X/21DAYS [TOTAL DOSE: 91 TAB(S)]
     Route: 048
     Dates: start: 20020301, end: 20020601

REACTIONS (10)
  - CHEST PAIN [None]
  - DISTURBANCE IN ATTENTION [None]
  - ABNORMAL BEHAVIOUR [None]
  - UNEVALUABLE EVENT [None]
  - HEADACHE [None]
  - DYSPNOEA [None]
  - THROMBOSIS [None]
  - COMA [None]
  - PULMONARY EMBOLISM [None]
  - VOMITING [None]
